FAERS Safety Report 14136883 (Version 2)
Quarter: 2018Q1

REPORT INFORMATION
  Report Type: Report from Study
  Country: US (occurrence: US)
  Receive Date: 20171027
  Receipt Date: 20180205
  Transmission Date: 20180508
  Serious: Yes (Death, Hospitalization)
  Sender: FDA-Public Use
  Company Number: US-OTSUKA-2017_019533

PATIENT
  Age: 22 Year
  Sex: Male

DRUGS (1)
  1. BREXPIPRAZOLE [Suspect]
     Active Substance: BREXPIPRAZOLE
     Indication: MAJOR DEPRESSION
     Dosage: 2 MG, QD
     Route: 048
     Dates: start: 201704

REACTIONS (5)
  - Drug abuse [Unknown]
  - Incorrect dose administered [Unknown]
  - Completed suicide [Fatal]
  - Hospitalisation [Unknown]
  - Social problem [Unknown]

NARRATIVE: CASE EVENT DATE: 20170904
